FAERS Safety Report 18972727 (Version 1)
Quarter: 2021Q1

REPORT INFORMATION
  Report Type: Report from Study
  Country: MX (occurrence: MX)
  Receive Date: 20210305
  Receipt Date: 20210305
  Transmission Date: 20210420
  Serious: Yes (Other)
  Sender: FDA-Public Use
  Company Number: NVSC2021MX046838

PATIENT
  Age: 71 Year
  Sex: Male
  Weight: 36 kg

DRUGS (2)
  1. SYTINE [Concomitant]
     Indication: AMNESIA
     Dosage: 1 DF, BID
     Route: 048
     Dates: start: 202101
  2. EXELON [Suspect]
     Active Substance: RIVASTIGMINE TARTRATE
     Indication: AMNESIA
     Dosage: 1 DF, QD
     Route: 003

REACTIONS (3)
  - Feeling abnormal [Recovering/Resolving]
  - Loss of consciousness [Unknown]
  - Speech disorder [Unknown]

NARRATIVE: CASE EVENT DATE: 202101
